FAERS Safety Report 6697201-9 (Version None)
Quarter: 2010Q2

REPORT INFORMATION
  Report Type: 
  Country: None (occurrence: None)
  Receive Date: 20100426
  Receipt Date: 20100414
  Transmission Date: 20101027
  Serious: Yes (Death, Other)
  Sender: FDA-Public Use
  Company Number: BG-PFIZER INC-2010047514

PATIENT
  Age: 61 Year
  Sex: Male

DRUGS (1)
  1. SUNITINIB MALATE [Suspect]
     Indication: METASTATIC RENAL CELL CARCINOMA
     Dosage: 50 MG, DAILY
     Dates: start: 20061201, end: 20080401

REACTIONS (4)
  - ANAEMIA [None]
  - ASTHENIA [None]
  - DEATH [None]
  - DIARRHOEA [None]
